FAERS Safety Report 5769102-1 (Version None)
Quarter: 2008Q2

REPORT INFORMATION
  Report Type: 
  Country: None (occurrence: None)
  Receive Date: 20080612
  Receipt Date: 20080318
  Transmission Date: 20081010
  Serious: No
  Sender: FDA-Public Use
  Company Number: US-ABBOTT-08P-163-0443692-00

PATIENT
  Sex: Female
  Weight: 122.13 kg

DRUGS (5)
  1. HUMIRA [Suspect]
     Indication: ANKYLOSING SPONDYLITIS
     Route: 058
     Dates: start: 20080228
  2. PREDNISONE TAB [Concomitant]
     Indication: ANKYLOSING SPONDYLITIS
  3. METHOTREXATE [Concomitant]
     Indication: ANKYLOSING SPONDYLITIS
  4. FOLIC ACID [Concomitant]
     Indication: VITAMIN SUPPLEMENTATION
  5. CALCIUM [Concomitant]
     Indication: MINERAL SUPPLEMENTATION

REACTIONS (5)
  - COUGH [None]
  - PHARYNGOLARYNGEAL PAIN [None]
  - RHINORRHOEA [None]
  - SPUTUM DISCOLOURED [None]
  - VIRAL INFECTION [None]
